FAERS Safety Report 9830448 (Version 1)
Quarter: 2014Q1

REPORT INFORMATION
  Report Type: Spontaneous
  Country: FR (occurrence: FR)
  Receive Date: 20140120
  Receipt Date: 20140120
  Transmission Date: 20141002
  Serious: Yes (Disabling, Other)
  Sender: FDA-Public Use
  Company Number: FR-JNJFOC-20140108582

PATIENT
  Age: 34 Year
  Sex: Male

DRUGS (4)
  1. RISPERDAL [Suspect]
     Indication: PRODUCT USED FOR UNKNOWN INDICATION
     Route: 048
  2. LEPONEX [Concomitant]
     Route: 048
  3. FLUVOXAMINE [Concomitant]
     Route: 048
  4. LYSANXIA [Concomitant]
     Route: 048

REACTIONS (1)
  - Leukocytosis [Recovering/Resolving]
